FAERS Safety Report 9059956 (Version 2)
Quarter: 2013Q1

REPORT INFORMATION
  Report Type: Spontaneous
  Country: US (occurrence: None)
  Receive Date: 20130118
  Receipt Date: 20130208
  Transmission Date: 20140127
  Serious: Yes (Other)
  Sender: FDA-Public Use
  Company Number: 1301-048

PATIENT
  Age: 62 Year
  Sex: Female
  Weight: 68.04 kg

DRUGS (6)
  1. EYLEA (AFLIBERCEPT) (INJECTION) (AFLIBERCEPT) [Suspect]
     Indication: AGE-RELATED MACULAR DEGENERATION
     Dosage: INTRAVITREAL
     Route: 044
     Dates: start: 20121008
  2. LIPITOR (ATORVASTATIN CALCIUM) [Concomitant]
  3. ESTRAVIL [Concomitant]
  4. VITAMINS [Concomitant]
  5. GLUCOSAMINE/CHONDROITIN (JOINT FOOD /01430901/) [Concomitant]
  6. LUTEIN (XANTOFYL) [Concomitant]

REACTIONS (3)
  - Blindness unilateral [None]
  - Alopecia [None]
  - Blister [None]
